FAERS Safety Report 8761728 (Version 1)
Quarter: 2012Q4

REPORT INFORMATION
  Report Type: 
  Country: US (occurrence: None)
  Receive Date: 20120830
  Receipt Date: 20120830
  Transmission Date: 20130627
  Serious: Yes (Hospitalization)
  Sender: FDA-Public Use
  Company Number: None

PATIENT
  Sex: Male
  Weight: 75.7 kg

DRUGS (5)
  1. ALFA 2 INTERFERON 2B (INTRON-A) [Suspect]
     Dates: start: 20120619, end: 20120710
  2. NEXIUM [Concomitant]
  3. PHOSPHA NEUTRAL [Concomitant]
  4. PROPANOLOL [Concomitant]
  5. TRAZODONE [Concomitant]

REACTIONS (1)
  - Hypophosphataemia [None]
